FAERS Safety Report 8380332-5 (Version None)
Quarter: 2012Q2

REPORT INFORMATION
  Report Type: 
  Country: None (occurrence: None)
  Receive Date: 20120523
  Receipt Date: 20120517
  Transmission Date: 20120825
  Serious: Yes (Hospitalization, Other)
  Sender: FDA-Public Use
  Company Number: US-PFIZER INC-2012120619

PATIENT
  Age: 85 Year
  Sex: Female
  Weight: 79.4 kg

DRUGS (9)
  1. REVATIO [Suspect]
     Dosage: 20 MG, 2X/DAY
     Route: 048
  2. POTASSIUM [Concomitant]
     Dosage: UNK
  3. LEVOTHYROXINE [Concomitant]
     Indication: HYPOTHYROIDISM
     Dosage: UNK, 1X/DAY
     Route: 048
  4. ADVAIR DISKUS 100/50 [Concomitant]
     Dosage: UNK, 2X/DAY
  5. COLCHICINE [Concomitant]
     Dosage: UNK
  6. VITAMIN E [Concomitant]
     Dosage: UNK
  7. REVATIO [Suspect]
     Indication: PULMONARY HYPERTENSION
     Dosage: 20 MG, 3X/DAY
     Route: 048
  8. FUROSEMIDE [Concomitant]
     Dosage: UNK, 3X/DAY
     Route: 048
  9. WARFARIN [Concomitant]
     Indication: ANTICOAGULANT THERAPY
     Dosage: UNK

REACTIONS (4)
  - LIMB INJURY [None]
  - WEIGHT DECREASED [None]
  - OPEN WOUND [None]
  - POOR PERIPHERAL CIRCULATION [None]
